FAERS Safety Report 7028072-9 (Version None)
Quarter: 2010Q3

REPORT INFORMATION
  Report Type: 
  Country: None (occurrence: None)
  Receive Date: 20100930
  Receipt Date: 20100920
  Transmission Date: 20110219
  Serious: Yes (Hospitalization)
  Sender: FDA-Public Use
  Company Number: WAES 1008USA00004

PATIENT
  Age: 59 Year
  Sex: Male

DRUGS (3)
  1. DECADRON [Suspect]
     Indication: NAUSEA
     Dosage: 4 MG/PRN PO
     Route: 048
     Dates: start: 20100101
  2. MAXOLON [Suspect]
     Indication: NAUSEA
     Dosage: 10 MG/PRN PO
     Route: 048
     Dates: start: 20100101
  3. BLINDED THERAPY [Concomitant]

REACTIONS (4)
  - MALIGNANT NEOPLASM PROGRESSION [None]
  - PLEURAL MESOTHELIOMA MALIGNANT ADVANCED [None]
  - PNEUMONIA [None]
  - WEIGHT DECREASED [None]
